FAERS Safety Report 17074819 (Version 2)
Quarter: 2019Q4

REPORT INFORMATION
  Report Type: Spontaneous
  Country: US (occurrence: US)
  Receive Date: 20191126
  Receipt Date: 20191129
  Transmission Date: 20200122
  Serious: Yes (Hospitalization)
  Sender: FDA-Public Use
  Company Number: US-ASTRAZENECA-2019SF66005

PATIENT
  Age: 783 Month
  Sex: Female
  Weight: 106.6 kg

DRUGS (1)
  1. BYDUREON BCISE [Suspect]
     Active Substance: EXENATIDE
     Indication: TYPE 2 DIABETES MELLITUS
     Route: 058
     Dates: start: 201909

REACTIONS (12)
  - Eye swelling [Recovering/Resolving]
  - Rash macular [Not Recovered/Not Resolved]
  - Mouth ulceration [Not Recovered/Not Resolved]
  - Drug hypersensitivity [Recovering/Resolving]
  - Eye infection staphylococcal [Recovered/Resolved]
  - Stevens-Johnson syndrome [Recovering/Resolving]
  - Visual impairment [Recovering/Resolving]
  - Pain [Recovering/Resolving]
  - Pruritus [Not Recovered/Not Resolved]
  - Renal disorder [Not Recovered/Not Resolved]
  - Device malfunction [Unknown]
  - Product dose omission [Recovered/Resolved]

NARRATIVE: CASE EVENT DATE: 201909
